FAERS Safety Report 8374236-1 (Version None)
Quarter: 2012Q2

REPORT INFORMATION
  Report Type: 
  Country: None (occurrence: None)
  Receive Date: 20120521
  Receipt Date: 20120517
  Transmission Date: 20120825
  Serious: Yes (Hospitalization)
  Sender: FDA-Public Use
  Company Number: US-MERCK-1202USA00896

PATIENT
  Age: 58 Year
  Sex: Female
  Weight: 48 kg

DRUGS (6)
  1. ALENDRONATE SODIUM [Suspect]
     Indication: OSTEOPENIA
     Route: 048
     Dates: start: 20080407, end: 20110210
  2. CALCIUM (UNSPECIFIED) [Concomitant]
     Route: 065
  3. FOSAMAX [Suspect]
     Route: 048
     Dates: start: 20080407, end: 20110210
  4. FOSAMAX [Suspect]
     Route: 048
  5. FOSAMAX [Suspect]
     Indication: OSTEOPENIA
     Route: 048
     Dates: start: 20020920, end: 20071208
  6. BONIVA [Concomitant]
     Indication: OSTEOPENIA
     Route: 065

REACTIONS (18)
  - TEMPERATURE INTOLERANCE [None]
  - OSTEOPOROSIS [None]
  - BODY HEIGHT DECREASED [None]
  - HYPERPARATHYROIDISM [None]
  - URINE ANALYSIS ABNORMAL [None]
  - JOINT DISLOCATION [None]
  - FEMUR FRACTURE [None]
  - VULVOVAGINAL CANDIDIASIS [None]
  - COSTOCHONDRITIS [None]
  - BREAST PAIN [None]
  - OESTROGEN DEFICIENCY [None]
  - ABDOMINAL DISTENSION [None]
  - CONSTIPATION [None]
  - LOW TURNOVER OSTEOPATHY [None]
  - EYE PRURITUS [None]
  - FALL [None]
  - VULVOVAGINAL DRYNESS [None]
  - HYPERCALCAEMIA [None]
